FAERS Safety Report 10952339 (Version 1)
Quarter: 2015Q1

REPORT INFORMATION
  Report Type: Spontaneous
  Country: US (occurrence: None)
  Receive Date: 20150323
  Receipt Date: 20150323
  Transmission Date: 20150721
  Serious: No
  Sender: FDA-Public Use
  Company Number: VIT-2014-02679

PATIENT
  Age: 43 Year
  Sex: Male
  Weight: 88 kg

DRUGS (16)
  1. VELPHORO [Suspect]
     Active Substance: FERRIC OXYHYDROXIDE
     Indication: HYPERPHOSPHATAEMIA
     Route: 048
     Dates: start: 20140715
  2. COREG [Concomitant]
     Active Substance: CARVEDILOL
  3. GOLYTELY (SODIUM BICARBONATE) [Concomitant]
  4. LISINOPRIL. [Concomitant]
     Active Substance: LISINOPRIL
  5. FOSRENOL (LANTHANUM CARBONATE) [Concomitant]
  6. PREVACID [Concomitant]
     Active Substance: LANSOPRAZOLE
  7. TUMS [Concomitant]
     Active Substance: CALCIUM CARBONATE
  8. GLYCEROL [Concomitant]
     Active Substance: GLYCERIN
  9. RENVELA [Concomitant]
     Active Substance: SEVELAMER CARBONATE
  10. AMLODIPINE [Concomitant]
     Active Substance: AMLODIPINE BESYLATE
  11. DOXAZOSIN [Concomitant]
     Active Substance: DOXAZOSIN\DOXAZOSIN MESYLATE
  12. SODIUM BICARBONATE. [Concomitant]
     Active Substance: SODIUM BICARBONATE
  13. SENSIPAR (CINACALCET HYDROCHLORIDE) [Concomitant]
  14. CALCITRIOL. [Concomitant]
     Active Substance: CALCITRIOL
  15. SENNA-S (SENNOSIDE A+B) [Concomitant]
  16. CALCIUM [Concomitant]
     Active Substance: CALCIUM

REACTIONS (2)
  - Product taste abnormal [None]
  - Oral administration complication [None]
